FAERS Safety Report 20269322 (Version 2)
Quarter: 2022Q3

REPORT INFORMATION
  Report Type: Other
  Country: MX (occurrence: None)
  Receive Date: 20220101
  Receipt Date: 20220705
  Transmission Date: 20221027
  Serious: Yes (Other)
  Sender: FDA-Public Use
  Company Number: MX-ROCHE-2993253

PATIENT
  Sex: Female

DRUGS (1)
  1. OCREVUS [Suspect]
     Active Substance: OCRELIZUMAB
     Indication: Multiple sclerosis
     Dosage: 300MG/10ML (30MG/ML)
     Route: 042
     Dates: start: 20201112

REACTIONS (4)
  - Magnetic resonance imaging head abnormal [Not Recovered/Not Resolved]
  - Cerebral disorder [Not Recovered/Not Resolved]
  - Sinusitis [Not Recovered/Not Resolved]
  - Spinal cord injury [Unknown]
